FAERS Safety Report 11235992 (Version 2)
Quarter: 2021Q2

REPORT INFORMATION
  Report Type: Spontaneous
  Country: CA (occurrence: CA)
  Receive Date: 20150702
  Receipt Date: 20210409
  Transmission Date: 20210716
  Serious: Yes (Death)
  Sender: FDA-Public Use
  Company Number: CA-PFIZER INC-2015220953

PATIENT
  Age: 57 Year
  Sex: Female

DRUGS (8)
  1. REVATIO [Suspect]
     Active Substance: SILDENAFIL CITRATE
     Indication: PULMONARY ARTERIAL HYPERTENSION
     Dosage: 20 MG, 3X/DAY
     Route: 048
     Dates: start: 20140429
  2. DILTIAZEM. [Concomitant]
     Active Substance: DILTIAZEM
     Dosage: UNK
  3. SLOW K [Concomitant]
     Active Substance: POTASSIUM CHLORIDE
     Dosage: UNK
  4. PERCOCET [OXYCODONE HYDROCHLORIDE;OXYCODONE TEREPHTHALATE;PARACETAMOL] [Concomitant]
     Active Substance: ACETAMINOPHEN\OXYCODONE HYDROCHLORIDE\OXYCODONE TEREPHTHALATE
     Dosage: UNK
  5. ELTROXIN [Concomitant]
     Active Substance: LEVOTHYROXINE
     Dosage: UNK
  6. LASIX [Concomitant]
     Active Substance: FUROSEMIDE
     Dosage: UNK
  7. ASA [Concomitant]
     Active Substance: ASPIRIN
     Dosage: UNK
  8. PANTOLOC [PANTOPRAZOLE SODIUM SESQUIHYDRATE] [Concomitant]
     Active Substance: PANTOPRAZOLE SODIUM
     Dosage: UNK

REACTIONS (1)
  - Death [Fatal]
